FAERS Safety Report 4831131-X (Version None)
Quarter: 2005Q4

REPORT INFORMATION
  Report Type: 
  Country: None (occurrence: None)
  Receive Date: 20051114
  Receipt Date: 20051024
  Transmission Date: 20060501
  Serious: No
  Sender: FDA-Public Use
  Company Number: US_0510123308

PATIENT
  Age: 23 Year
  Sex: Male

DRUGS (1)
  1. OLANZAPINE [Suspect]
     Indication: AFFECTIVE DISORDER
     Dosage: 15 MG DAY

REACTIONS (4)
  - ADVERSE DRUG REACTION [None]
  - MANIA [None]
  - PURPURA [None]
  - RASH [None]
